FAERS Safety Report 25954921 (Version 3)
Quarter: 2025Q4

REPORT INFORMATION
  Report Type: Spontaneous
  Country: EU (occurrence: EU)
  Receive Date: 20251024
  Receipt Date: 20251110
  Transmission Date: 20260117
  Serious: Yes (Hospitalization, Other)
  Sender: AUROBINDO
  Company Number: EU-AUROBINDO-AUR-APL-2025-053771

PATIENT
  Age: 38 Year
  Sex: Female

DRUGS (21)
  1. RAMIPRIL [Suspect]
     Active Substance: RAMIPRIL
     Indication: Cardiac dysfunction
     Dosage: 5 MILLIGRAM, DAILY
     Route: 065
  2. RAMIPRIL [Suspect]
     Active Substance: RAMIPRIL
     Dosage: 2.5 MILLIGRAM, DAILY
     Route: 065
  3. RAMIPRIL [Suspect]
     Active Substance: RAMIPRIL
     Dosage: 1.25 MILLIGRAM, DAILY
     Route: 065
  4. CARVEDILOL [Suspect]
     Active Substance: CARVEDILOL
     Indication: Cardiac dysfunction
     Dosage: 12.5 MILLIGRAM, DAILY
     Route: 065
  5. CARVEDILOL [Suspect]
     Active Substance: CARVEDILOL
     Dosage: 7.5 MILLIGRAM, DAILY
     Route: 065
  6. METOPROLOL [Suspect]
     Active Substance: METOPROLOL
     Indication: Cardiac dysfunction
     Dosage: 50 MILLIGRAM, DAILY
     Route: 065
  7. METOPROLOL [Suspect]
     Active Substance: METOPROLOL
     Dosage: 100 MILLIGRAM, DAILY
     Route: 065
  8. CLOPIDOGREL [Suspect]
     Active Substance: CLOPIDOGREL BISULFATE
     Indication: Cardiac dysfunction
     Dosage: 75 MILLIGRAM, DAILY
     Route: 065
  9. IVABRADINE [Suspect]
     Active Substance: IVABRADINE
     Indication: Cardiac dysfunction
     Dosage: 10 MILLIGRAM, DAILY
     Route: 065
  10. IVABRADINE [Suspect]
     Active Substance: IVABRADINE
     Dosage: 10 MILLIGRAM, DAILY
     Route: 065
  11. IVABRADINE [Suspect]
     Active Substance: IVABRADINE
     Dosage: 10 MILLIGRAM, DAILY
     Route: 065
  12. SILDENAFIL [Suspect]
     Active Substance: SILDENAFIL
     Indication: Cardiac dysfunction
     Dosage: 50 MILLIGRAM, DAILY
     Route: 065
  13. TORSEMIDE [Suspect]
     Active Substance: TORSEMIDE
     Indication: Cardiac dysfunction
     Dosage: 65 MILLIGRAM, DAILY
     Route: 065
  14. SPIRONOLACTONE [Suspect]
     Active Substance: SPIRONOLACTONE
     Indication: Cardiac dysfunction
     Dosage: 25 MILLIGRAM, DAILY
     Route: 065
  15. EPLERENONE [Suspect]
     Active Substance: EPLERENONE
     Indication: Cardiac dysfunction
     Dosage: 25 MILLIGRAM, DAILY
     Route: 065
  16. EPLERENONE [Suspect]
     Active Substance: EPLERENONE
     Dosage: 25 MILLIGRAM, DAILY
     Route: 065
  17. LEVOSIMENDAN [Suspect]
     Active Substance: LEVOSIMENDAN
     Indication: Cardiac dysfunction
     Dosage: 12.5 MILLIGRAM, DAILY
     Route: 065
  18. LEVOSIMENDAN [Suspect]
     Active Substance: LEVOSIMENDAN
     Dosage: 12.5 MILLIGRAM, DAILY
     Route: 065
  19. LEVOSIMENDAN [Suspect]
     Active Substance: LEVOSIMENDAN
     Dosage: 12.5 MILLIGRAM, DAILY
     Route: 065
  20. SACUBITRIL\VALSARTAN [Suspect]
     Active Substance: SACUBITRIL\VALSARTAN
     Indication: Cardiac dysfunction
     Dosage: UNK (48/52 MG/DAY)
     Route: 065
  21. WARFARIN [Suspect]
     Active Substance: WARFARIN
     Indication: Cardiac dysfunction
     Dosage: UNK
     Route: 065

REACTIONS (3)
  - Drug ineffective [Unknown]
  - Cardiac failure [Unknown]
  - Therapeutic product effect incomplete [Unknown]
